FAERS Safety Report 10091561 (Version 2)
Quarter: 2014Q2

REPORT INFORMATION
  Report Type: Spontaneous
  Country: US (occurrence: US)
  Receive Date: 20140421
  Receipt Date: 20140421
  Transmission Date: 20141212
  Serious: No
  Sender: FDA-Public Use
  Company Number: US-GILEAD-2013-0068884

PATIENT
  Sex: Female

DRUGS (1)
  1. LETAIRIS [Suspect]
     Indication: SYSTEMIC LUPUS ERYTHEMATOSUS
     Dates: start: 20120509

REACTIONS (1)
  - Bladder disorder [Unknown]
